FAERS Safety Report 20896559 (Version 1)
Quarter: 2022Q2

REPORT INFORMATION
  Report Type: Spontaneous
  Country: JP (occurrence: JP)
  Receive Date: 20220531
  Receipt Date: 20220531
  Transmission Date: 20220721
  Serious: Yes (Other)
  Sender: FDA-Public Use
  Company Number: JP-GILEAD-2022-0583191

PATIENT
  Age: 7 Decade
  Sex: Female

DRUGS (1)
  1. HARVONI [Suspect]
     Active Substance: LEDIPASVIR\SOFOSBUVIR
     Indication: Chronic hepatitis C
     Dosage: UNK
     Route: 065

REACTIONS (4)
  - Hepatocellular carcinoma [Recovering/Resolving]
  - Hepatocellular carcinoma [Recovering/Resolving]
  - Hepatocellular carcinoma [Recovering/Resolving]
  - Hepatocellular carcinoma [Recovering/Resolving]
